FAERS Safety Report 16254972 (Version 1)
Quarter: 2019Q2

REPORT INFORMATION
  Report Type: Spontaneous
  Country: ES (occurrence: ES)
  Receive Date: 20190430
  Receipt Date: 20190430
  Transmission Date: 20190711
  Serious: Yes (Death, Other)
  Sender: FDA-Public Use
  Company Number: ES-TEVA-2019-ES-1043553

PATIENT
  Age: 48 Year
  Sex: Female

DRUGS (8)
  1. AVASTIN [Suspect]
     Active Substance: BEVACIZUMAB
     Indication: ADENOCARCINOMA OF COLON
     Dosage: PART OF MFOLFOX6-BEVACIZUMAB REGIMEN AND 5FU-AVASTIN REGIMEN
     Route: 065
     Dates: start: 201309
  2. SIR-SPHERES [Suspect]
     Active Substance: DEVICE\YTTRIUM Y-90
     Indication: ADENOCARCINOMA OF COLON
     Route: 065
     Dates: start: 201402
  3. FOLINIC ACID [Suspect]
     Active Substance: LEUCOVORIN
     Indication: ADENOCARCINOMA OF COLON
     Dosage: PART OF MFOLFOX6-BEVACIZUMAB REGIMEN
     Route: 065
     Dates: start: 201309
  4. 5-FLUOROURACIL [Suspect]
     Active Substance: FLUOROURACIL
     Indication: ADENOCARCINOMA OF COLON
     Dosage: PART OF MFOLFOX6-BEVACIZUMAB AND 5FU-AVASTIN REGIMEN
     Route: 065
     Dates: start: 201309
  5. OXALIPLATIN. [Suspect]
     Active Substance: OXALIPLATIN
     Indication: ADENOCARCINOMA OF COLON
     Dosage: PART OF MFOLFOX6-BEVACIZUMAB
     Route: 065
     Dates: start: 201309
  6. IRINOTECAN [Suspect]
     Active Substance: IRINOTECAN
     Indication: ADENOCARCINOMA OF COLON
     Dosage: PART OF FOLFIRI-AFLIBERCEPT REGIMEN
     Route: 065
  7. AFLIBERCEPT [Suspect]
     Active Substance: AFLIBERCEPT
     Indication: ADENOCARCINOMA OF COLON
     Dosage: PART OF FOLFIRI-AFLIBERCEPT REGIMEN
     Route: 065
  8. TAS-102 [Suspect]
     Active Substance: TIPIRACIL HYDROCHLORIDE\TRIFLURIDINE
     Indication: ADENOCARCINOMA OF COLON
     Route: 065

REACTIONS (10)
  - Hepatic failure [Fatal]
  - Anaemia [Unknown]
  - Varices oesophageal [Unknown]
  - Abdominal pain [Unknown]
  - Vomiting [Unknown]
  - Hyperalbuminaemia [Unknown]
  - Non-cirrhotic portal hypertension [Unknown]
  - Splenomegaly [Unknown]
  - Duodenal ulcer haemorrhage [Unknown]
  - Hypoalbuminaemia [Unknown]
